FAERS Safety Report 20509762 (Version 4)
Quarter: 2023Q1

REPORT INFORMATION
  Report Type: Report from Study
  Country: FR (occurrence: FR)
  Receive Date: 20220224
  Receipt Date: 20230322
  Transmission Date: 20230417
  Serious: Yes (Other)
  Sender: FDA-Public Use
  Company Number: FR-NOVARTISPH-NVSC2022FR026985

PATIENT
  Sex: Male

DRUGS (2)
  1. DABRAFENIB [Suspect]
     Active Substance: DABRAFENIB
     Indication: Metastatic malignant melanoma
     Dosage: 300 MG
     Route: 048
     Dates: start: 20210609, end: 20220404
  2. TRAMETINIB [Suspect]
     Active Substance: TRAMETINIB
     Indication: Metastatic malignant melanoma
     Dosage: 2 MG
     Route: 048
     Dates: start: 20210609, end: 20220607

REACTIONS (5)
  - Pulmonary embolism [Not Recovered/Not Resolved]
  - Ejection fraction decreased [Recovered/Resolved]
  - Dyspnoea [Recovered/Resolved]
  - Rash erythematous [Recovered/Resolved]
  - Oedema peripheral [Not Recovered/Not Resolved]

NARRATIVE: CASE EVENT DATE: 20211201
